FAERS Safety Report 14941380 (Version 1)
Quarter: 2018Q2

REPORT INFORMATION
  Report Type: Spontaneous
  Country: US (occurrence: US)
  Receive Date: 20180526
  Receipt Date: 20180526
  Transmission Date: 20180711
  Serious: Yes (Death, Hospitalization, Other)
  Sender: FDA-Public Use
  Company Number: US-INGENUS PHARMACEUTICALS, LLC-INF201805-000462

PATIENT
  Age: 58 Year
  Sex: Male

DRUGS (3)
  1. PACLITAXEL. [Suspect]
     Active Substance: PACLITAXEL
     Dosage: 2 CYCLES
  2. CARBOPLATIN. [Suspect]
     Active Substance: CARBOPLATIN
     Dosage: 2 CYCLES
  3. TAXOL [Suspect]
     Active Substance: PACLITAXEL

REACTIONS (6)
  - Sepsis [Not Recovered/Not Resolved]
  - Pneumocephalus [Recovered/Resolved]
  - Headache [Recovered/Resolved]
  - Acute respiratory distress syndrome [Fatal]
  - Fistula [Not Recovered/Not Resolved]
  - Bacteraemia [Not Recovered/Not Resolved]
